FAERS Safety Report 4339391-9 (Version None)
Quarter: 2004Q2

REPORT INFORMATION
  Report Type: 
  Country: None (occurrence: None)
  Receive Date: 20040415
  Receipt Date: 20040322
  Transmission Date: 20050107
  Serious: Yes (Hospitalization)
  Sender: FDA-Public Use
  Company Number: FR-MERCK-0403FRA00079

PATIENT
  Age: 52 Year
  Sex: Female

DRUGS (12)
  1. AMPHOTERICIN B [Suspect]
     Route: 048
     Dates: start: 20040210, end: 20040310
  2. ASCORBIC ACID [Concomitant]
     Route: 048
     Dates: start: 20040130, end: 20040310
  3. CALCIUM CARBONATE AND CHOLECALCIFEROL [Concomitant]
     Route: 048
     Dates: start: 20040130, end: 20040310
  4. FOLIC ACID [Concomitant]
     Route: 048
     Dates: start: 20040215, end: 20040310
  5. FUROSEMIDE [Suspect]
     Indication: ASCITES
     Route: 048
     Dates: start: 20040120, end: 20040310
  6. FUROSEMIDE [Suspect]
     Indication: OEDEMA
     Route: 048
     Dates: start: 20040120, end: 20040310
  7. NOROXIN [Suspect]
     Indication: PROPHYLAXIS
     Route: 048
     Dates: start: 20040124, end: 20040310
  8. OMEPRAZOLE SODIUM [Suspect]
     Route: 048
     Dates: start: 20040124, end: 20040310
  9. PREDNISONE [Suspect]
     Indication: ASCITES
     Route: 048
     Dates: start: 20040130, end: 20040310
  10. SPIRONOLACTONE [Suspect]
     Indication: ASCITES
     Route: 048
     Dates: start: 20040120, end: 20040310
  11. ZOLPIDEM TARTRATE [Concomitant]
     Route: 048
     Dates: end: 20040310
  12. ZOLPIDEM TARTRATE [Concomitant]
     Route: 048
     Dates: start: 20040301

REACTIONS (2)
  - AGRANULOCYTOSIS [None]
  - BONE MARROW TOXICITY [None]
